FAERS Safety Report 7946486-7 (Version None)
Quarter: 2011Q4

REPORT INFORMATION
  Report Type: 
  Country: None (occurrence: None)
  Receive Date: 20111123
  Receipt Date: 20111113
  Transmission Date: 20120403
  Serious: Yes (Life-Threatening, Hospitalization, Congenital Anomaly)
  Sender: FDA-Public Use
  Company Number: GB-DEXPHARM-20111726

PATIENT
  Age: 50 Year
  Sex: Male

DRUGS (19)
  1. CHLORHEXIDINE GLUCONATE [Suspect]
  2. RANITIDINE [Concomitant]
  3. CHLORPHENIRAMINE MALEATE [Concomitant]
  4. HYDROCORTISONE [Concomitant]
  5. PANCURONIUM [Concomitant]
  6. PREDNISOLONE [Concomitant]
  7. CHLORHEXIDINE GLUCONATE [Suspect]
  8. FENTANYL [Concomitant]
  9. PROPOFOL [Concomitant]
  10. TEMAZEPAM [Concomitant]
  11. MIDAZOLAM [Concomitant]
  12. GLICLAZODE [Concomitant]
  13. HYOSCINE [Concomitant]
  14. MORPHINE [Concomitant]
  15. METHYLPREDNISOLONE [Concomitant]
  16. AQUEOUS IODINE [Concomitant]
  17. ATENOLOL [Concomitant]
  18. DILTIAZEM HCL [Concomitant]
  19. LIDOCAINE [Concomitant]

REACTIONS (4)
  - ANAPHYLACTIC REACTION [None]
  - HYPOTENSION [None]
  - PULSELESS ELECTRICAL ACTIVITY [None]
  - CARDIAC ARREST [None]
